FAERS Safety Report 12967082 (Version 2)
Quarter: 2016Q4

REPORT INFORMATION
  Report Type: Spontaneous
  Country: US (occurrence: US)
  Receive Date: 20161123
  Receipt Date: 20161128
  Transmission Date: 20170207
  Serious: Yes (Other)
  Sender: FDA-Public Use
  Company Number: US-STRIDES ARCOLAB LIMITED-2016SP018033

PATIENT

DRUGS (1)
  1. VANCOMYCIN [Suspect]
     Active Substance: VANCOMYCIN
     Indication: CLOSTRIDIUM DIFFICILE INFECTION
     Dosage: UNK
     Route: 048

REACTIONS (5)
  - Klebsiella infection [Unknown]
  - Diarrhoea haemorrhagic [Recovered/Resolved]
  - Mucosal ulceration [Unknown]
  - Enterocolitis haemorrhagic [Unknown]
  - Colitis [Unknown]
